FAERS Safety Report 7369295-9 (Version None)
Quarter: 2011Q1

REPORT INFORMATION
  Report Type: 
  Country: None (occurrence: None)
  Receive Date: 20110323
  Receipt Date: 20110317
  Transmission Date: 20110831
  Serious: Yes (Hospitalization)
  Sender: FDA-Public Use
  Company Number: B0667791A

PATIENT
  Sex: Female

DRUGS (9)
  1. DEPAKENE [Suspect]
     Route: 065
     Dates: start: 20100702, end: 20100704
  2. AUGMENTIN [Suspect]
     Dosage: 3G PER DAY
     Route: 048
     Dates: start: 20100703, end: 20100704
  3. ROVAMYCINE [Suspect]
     Route: 048
     Dates: start: 20100704, end: 20100707
  4. DAFALGAN [Concomitant]
     Route: 065
  5. TOPALGIC (FRANCE) [Suspect]
     Route: 048
     Dates: start: 20100704, end: 20100706
  6. AERIUS [Suspect]
     Route: 048
     Dates: start: 20100704, end: 20100706
  7. PARKINANE [Concomitant]
     Route: 065
  8. TETRABENAZINE [Concomitant]
     Route: 065
  9. PAROXETINE HCL [Concomitant]
     Route: 065

REACTIONS (3)
  - RASH MORBILLIFORM [None]
  - RASH PUSTULAR [None]
  - SKIN EXFOLIATION [None]
